FAERS Safety Report 5149022-6 (Version None)
Quarter: 2006Q4

REPORT INFORMATION
  Report Type: 
  Country: None (occurrence: None)
  Receive Date: 20061108
  Receipt Date: 20061025
  Transmission Date: 20070319
  Serious: Yes (Other)
  Sender: FDA-Public Use
  Company Number: 2006SP005078

PATIENT
  Age: 46 Year
  Sex: Female
  Weight: 57.1532 kg

DRUGS (2)
  1. PEG-INTRON [Suspect]
     Indication: HEPATITIS C
     Dates: start: 20060419
  2. REBETOL [Suspect]
     Indication: HEPATITIS C
     Dosage: PO
     Route: 048
     Dates: start: 20060419

REACTIONS (12)
  - ANAEMIA [None]
  - ASTHMA [None]
  - BLOOD MAGNESIUM DECREASED [None]
  - BLOOD POTASSIUM DECREASED [None]
  - CHEST PAIN [None]
  - CONFUSIONAL STATE [None]
  - DECREASED APPETITE [None]
  - DISEASE RECURRENCE [None]
  - INSOMNIA [None]
  - PHOTOPSIA [None]
  - VISION BLURRED [None]
  - WEIGHT DECREASED [None]
